FAERS Safety Report 5716308-3 (Version None)
Quarter: 2008Q2

REPORT INFORMATION
  Report Type: 
  Country: None (occurrence: None)
  Receive Date: 20080416
  Receipt Date: 20070405
  Transmission Date: 20081010
  Serious: Yes (Life-Threatening)
  Sender: FDA-Public Use
  Company Number: PHEH2007US04360

PATIENT

DRUGS (2)
  1. FORADIL [Suspect]
     Dosage: INHALATION
     Route: 055
  2. PULMICORT [Suspect]

REACTIONS (3)
  - BRONCHOSPASM [None]
  - DRUG INTERACTION [None]
  - ENDOTRACHEAL INTUBATION [None]
